FAERS Safety Report 16846595 (Version 1)
Quarter: 2019Q3

REPORT INFORMATION
  Report Type: Spontaneous
  Country: SK (occurrence: SK)
  Receive Date: 20190924
  Receipt Date: 20190924
  Transmission Date: 20191005
  Serious: Yes (Other)
  Sender: FDA-Public Use
  Company Number: SK-UCBSA-2019040425

PATIENT
  Weight: 1.75 kg

DRUGS (1)
  1. CIMZIA [Suspect]
     Active Substance: CERTOLIZUMAB PEGOL
     Indication: JUVENILE IDIOPATHIC ARTHRITIS
     Dosage: 200 MILLIGRAM, EV 2 WEEKS(QOW)
     Route: 064
     Dates: start: 2018

REACTIONS (3)
  - Low birth weight baby [Unknown]
  - Premature baby [Unknown]
  - Maternal exposure before pregnancy [Unknown]

NARRATIVE: CASE EVENT DATE: 201906
